FAERS Safety Report 5918304-X (Version None)
Quarter: 2008Q4

REPORT INFORMATION
  Report Type: 
  Country: None (occurrence: None)
  Receive Date: 20081010
  Receipt Date: 20081001
  Transmission Date: 20090506
  Serious: Yes (Hospitalization)
  Sender: FDA-Public Use
  Company Number: 08H-163-0314987-00

PATIENT
  Age: 33 Year
  Sex: Male
  Weight: 117.9352 kg

DRUGS (8)
  1. ONDANSETRON [Suspect]
     Indication: DRUG USE FOR UNKNOWN INDICATION
     Dosage: 4 MG, ONCE, INTRAVENOUS
     Route: 042
     Dates: start: 20081001, end: 20081001
  2. VERSED [Concomitant]
  3. FENTANYL-100 [Concomitant]
  4. MORPHINE [Concomitant]
  5. TORADOL [Concomitant]
  6. PROPOFOL [Concomitant]
  7. LIDOCAINE [Concomitant]
  8. SUCCINYLCHOLINE CHLORIDE [Concomitant]

REACTIONS (5)
  - DYSKINESIA [None]
  - DYSTONIA [None]
  - EXTRAPYRAMIDAL DISORDER [None]
  - FALL [None]
  - TREMOR [None]
